FAERS Safety Report 7053615-9 (Version None)
Quarter: 2010Q4

REPORT INFORMATION
  Report Type: 
  Country: None (occurrence: None)
  Receive Date: 20101020
  Receipt Date: 20101013
  Transmission Date: 20110411
  Serious: Yes (Hospitalization)
  Sender: FDA-Public Use
  Company Number: SE-ROCHE-733664

PATIENT
  Sex: Female
  Weight: 72.5 kg

DRUGS (10)
  1. TRASTUZUMAB [Suspect]
     Indication: BREAST CANCER
     Dosage: DATE OF LAST DOSE PRIOR TO SAE: 04 OCTOBER 2010. DOSAGE FORM:IV
     Route: 042
     Dates: start: 20101004
  2. PERTUZUMAB [Suspect]
     Indication: BREAST CANCER
     Dosage: DOSAGE FORM:IV
     Route: 042
  3. CARBOPLATIN [Suspect]
     Indication: BREAST CANCER
     Dosage: DOSAGE FORM:IV
     Route: 042
  4. DOCETAXEL [Suspect]
     Indication: BREAST CANCER
     Dosage: DOSAGE FORM:IV
     Route: 042
  5. BETAMETASON [Concomitant]
     Dates: start: 20101003, end: 20101005
  6. BETAMETASON [Concomitant]
     Dates: start: 20101006, end: 20101006
  7. CETIRIZINE HCL [Concomitant]
     Dates: start: 20101004, end: 20101007
  8. PARACETAMOL [Concomitant]
     Dates: start: 20101004, end: 20101004
  9. ONDANSETRON [Concomitant]
     Dates: start: 20101004, end: 20101005
  10. METOCLOPRAMID [Concomitant]
     Dates: start: 20101010, end: 20101010

REACTIONS (3)
  - CARDIAC MURMUR [None]
  - NEUTROPENIA [None]
  - PYREXIA [None]
